FAERS Safety Report 20721642 (Version 1)
Quarter: 2022Q2

REPORT INFORMATION
  Report Type: Spontaneous
  Country: FR (occurrence: FR)
  Receive Date: 20220418
  Receipt Date: 20220418
  Transmission Date: 20220720
  Serious: Yes (Other)
  Sender: FDA-Public Use
  Company Number: FR-DENTSPLY-2022SCDP000088

PATIENT
  Age: 38 Year
  Sex: Female

DRUGS (1)
  1. LIDOCAINE\PRILOCAINE [Suspect]
     Active Substance: LIDOCAINE\PRILOCAINE
     Indication: Depilation
     Dosage: 12 TO 14 TUBES OF 5 % LIDOCAINE, PRILOCAINE BIOGARAN 5 G CREAM, SKIN ADHESIVE DRESSING
     Route: 003
     Dates: start: 20220307

REACTIONS (5)
  - Vertigo [Recovered/Resolved]
  - Malaise [Recovered/Resolved]
  - Blood methaemoglobin [Recovered/Resolved]
  - Cyanosis [Recovered/Resolved]
  - Overdose [Recovered/Resolved]

NARRATIVE: CASE EVENT DATE: 20220307
